FAERS Safety Report 8104694-9 (Version None)
Quarter: 2012Q1

REPORT INFORMATION
  Report Type: 
  Country: None (occurrence: None)
  Receive Date: 20120201
  Receipt Date: 20120128
  Transmission Date: 20120608
  Serious: Yes (Other)
  Sender: FDA-Public Use
  Company Number: FI-PFIZER INC-2011301890

PATIENT

DRUGS (1)
  1. LIPITOR [Suspect]
     Dosage: UNK

REACTIONS (10)
  - NASAL CONGESTION [None]
  - PANCREATITIS [None]
  - PANCREATIC CYST [None]
  - POOR QUALITY SLEEP [None]
  - RENAL FAILURE [None]
  - VISUAL ACUITY REDUCED [None]
  - BACK DISORDER [None]
  - WEIGHT INCREASED [None]
  - FATIGUE [None]
  - MEMORY IMPAIRMENT [None]
